FAERS Safety Report 10459836 (Version 1)
Quarter: 2014Q3

REPORT INFORMATION
  Report Type: Spontaneous
  Country: US (occurrence: US)
  Receive Date: 20140917
  Receipt Date: 20140917
  Transmission Date: 20150326
  Serious: Yes (Other)
  Sender: FDA-Public Use
  Company Number: US-CELGENEUS-163-21880-14092206

PATIENT
  Sex: Female

DRUGS (1)
  1. REVLIMID [Suspect]
     Active Substance: LENALIDOMIDE
     Indication: PLASMA CELL MYELOMA
     Dosage: 10 MILLIGRAM
     Route: 048
     Dates: start: 200811

REACTIONS (6)
  - Osteopenia [Unknown]
  - Blood disorder [Unknown]
  - Back pain [Unknown]
  - Osteoporosis [Unknown]
  - Lower limb fracture [Unknown]
  - Spinal fracture [Unknown]
